FAERS Safety Report 8268244-9 (Version None)
Quarter: 2012Q2

REPORT INFORMATION
  Report Type: 
  Country: None (occurrence: None)
  Receive Date: 20120409
  Receipt Date: 20120328
  Transmission Date: 20120825
  Serious: Yes (Other)
  Sender: FDA-Public Use
  Company Number: GR-ELI_LILLY_AND_COMPANY-GR201203008320

PATIENT
  Age: 75 Year
  Sex: Female

DRUGS (3)
  1. XAMIOL                             /06356901/ [Concomitant]
     Indication: PSORIASIS
     Dosage: UNK
     Dates: end: 20120325
  2. THYROHORMONE [Concomitant]
     Indication: HYPOTHYROIDISM
     Route: 048
  3. FORTEO [Suspect]
     Indication: OSTEOPOROSIS
     Dosage: 20 UG, QD
     Route: 058
     Dates: start: 20110601

REACTIONS (1)
  - PSORIASIS [None]
